FAERS Safety Report 10184555 (Version 2)
Quarter: 2014Q2

REPORT INFORMATION
  Report Type: Spontaneous
  Country: DE (occurrence: DE)
  Receive Date: 20140521
  Receipt Date: 20140626
  Transmission Date: 20141212
  Serious: Yes (Life-Threatening, Hospitalization)
  Sender: FDA-Public Use
  Company Number: DE-DRREDDYS-GER/GER/14/0040368

PATIENT
  Age: 52 Year
  Sex: Male
  Weight: 87 kg

DRUGS (7)
  1. VENLAFAXINE [Suspect]
     Indication: DEPRESSION
     Route: 048
     Dates: start: 20131009, end: 20140120
  2. VENLAFAXINE [Suspect]
  3. AMITRIPTYLIN RET. [Suspect]
     Indication: GASTROOESOPHAGEAL REFLUX DISEASE
     Route: 048
     Dates: start: 20131011, end: 20140120
  4. KATADOLON S LONG [Suspect]
     Indication: RADICULOPATHY
     Route: 048
     Dates: start: 20131011, end: 20140120
  5. PANTOZOL [Suspect]
     Indication: DEPRESSION
     Route: 048
     Dates: start: 20131009, end: 20140120
  6. QUETIAPIN RET. [Suspect]
     Indication: DEPRESSION
     Route: 048
     Dates: start: 20131011, end: 20140121
  7. NEURO-AS [Concomitant]
     Indication: PRODUCT USED FOR UNKNOWN INDICATION
     Route: 048

REACTIONS (4)
  - Hepatic enzyme increased [Recovered/Resolved]
  - General physical health deterioration [Recovered/Resolved]
  - Abdominal discomfort [Recovered/Resolved]
  - Diarrhoea [Recovered/Resolved]
